FAERS Safety Report 6151303-4 (Version None)
Quarter: 2009Q2

REPORT INFORMATION
  Report Type: 
  Country: None (occurrence: None)
  Receive Date: 20090410
  Receipt Date: 20090401
  Transmission Date: 20091009
  Serious: Yes (Other)
  Sender: FDA-Public Use
  Company Number: PHHY2009MX12684

PATIENT
  Sex: Male

DRUGS (1)
  1. TEGRETOL [Suspect]
     Indication: EPILEPSY
     Dosage: 20 MG (20 ML) DAILY
     Route: 048
     Dates: start: 20080416

REACTIONS (2)
  - ENTERITIS [None]
  - GASTROINTESTINAL PAIN [None]
